FAERS Safety Report 8366870-X (Version None)
Quarter: 2012Q2

REPORT INFORMATION
  Report Type: 
  Country: None (occurrence: None)
  Receive Date: 20120517
  Receipt Date: 20120510
  Transmission Date: 20120825
  Serious: Yes (Other)
  Sender: FDA-Public Use
  Company Number: US-JNJFOC-20120411789

PATIENT
  Sex: Female
  Weight: 92.99 kg

DRUGS (11)
  1. VICTOZA [Concomitant]
     Indication: GLUCOSE TOLERANCE IMPAIRED
  2. CORGARD [Concomitant]
     Indication: HEADACHE
  3. SIMPONI [Suspect]
     Indication: PSORIATIC ARTHROPATHY
     Route: 058
     Dates: start: 20091201
  4. NAPROXEN (ALEVE) [Concomitant]
     Indication: HEADACHE
  5. NAPROXEN (ALEVE) [Concomitant]
     Indication: ARTHRITIS
  6. SIMPONI [Suspect]
     Route: 058
     Dates: start: 20100101
  7. AMITIZA [Concomitant]
     Indication: CONSTIPATION
  8. ELAVIL [Concomitant]
     Indication: COMPLEX REGIONAL PAIN SYNDROME
  9. LEVOTHYROXINE SODIUM [Concomitant]
  10. MS CONTIN [Concomitant]
     Indication: COMPLEX REGIONAL PAIN SYNDROME
  11. ESTRATEST [Concomitant]
     Indication: HYSTERECTOMY

REACTIONS (4)
  - DEVICE MALFUNCTION [None]
  - MAMMOPLASTY [None]
  - THYROID CANCER [None]
  - DRUG DOSE OMISSION [None]
